FAERS Safety Report 5806853-4 (Version None)
Quarter: 2008Q3

REPORT INFORMATION
  Report Type: 
  Country: None (occurrence: None)
  Receive Date: 20080711
  Receipt Date: 20080630
  Transmission Date: 20090109
  Serious: Yes (Death, Hospitalization)
  Sender: FDA-Public Use
  Company Number: DE-WYE-H04841408

PATIENT
  Age: 82 Year
  Sex: Female

DRUGS (1)
  1. CORDAREX [Suspect]
     Indication: ATRIAL FIBRILLATION
     Dosage: 200 MG, THREE TIMES DAILY
     Route: 048
     Dates: start: 20080101

REACTIONS (5)
  - BRADYCARDIA [None]
  - CARDIOVASCULAR DISORDER [None]
  - INAPPROPRIATE SCHEDULE OF DRUG ADMINISTRATION [None]
  - OVERDOSE [None]
  - PNEUMONIA [None]
